FAERS Safety Report 5782116-0 (Version None)
Quarter: 2008Q2

REPORT INFORMATION
  Report Type: 
  Country: None (occurrence: None)
  Receive Date: 20080623
  Receipt Date: 20080619
  Transmission Date: 20081010
  Serious: Yes (Other)
  Sender: FDA-Public Use
  Company Number: CA-ABBOTT-08P-028-0458626-00

PATIENT
  Age: 74 Year
  Sex: Female

DRUGS (4)
  1. MERIDIA [Suspect]
     Indication: OBESITY
     Dosage: ONCE A DAY WITH INTERMITTENT USE
     Route: 048
     Dates: start: 20080211, end: 20080501
  2. TRANDOLAPRIL [Concomitant]
     Indication: HYPERTENSION
     Route: 048
  3. DIOVAN HCT [Concomitant]
     Indication: HYPERTENSION
     Dosage: 160MG/25MG ONCE A DAY
     Route: 048
  4. LEVOTHYROXINE SODIUM [Concomitant]
     Indication: HYPOTHYROIDISM
     Route: 048

REACTIONS (1)
  - MYOCARDIAL INFARCTION [None]
